FAERS Safety Report 7813628-3 (Version None)
Quarter: 2011Q4

REPORT INFORMATION
  Report Type: 
  Country: None (occurrence: None)
  Receive Date: 20111014
  Receipt Date: 20110929
  Transmission Date: 20120403
  Serious: Yes (Other)
  Sender: FDA-Public Use
  Company Number: NL-AMGEN-NLDSP2011051710

PATIENT
  Age: 46 Year
  Sex: Male

DRUGS (5)
  1. ENBREL [Suspect]
     Indication: RHEUMATOID ARTHRITIS
     Dosage: 50 MG, WEEKLY
     Dates: start: 20081101
  2. DOMPERIDONE [Concomitant]
     Dosage: UNK
  3. ARAVA [Concomitant]
     Dosage: UNK
  4. CALCIUM CARBONATE [Concomitant]
     Dosage: UNK
  5. PREDNISONE [Concomitant]
     Dosage: UNK

REACTIONS (2)
  - INFLUENZA [None]
  - UPPER LIMB FRACTURE [None]
